FAERS Safety Report 6614262-3 (Version None)
Quarter: 2010Q1

REPORT INFORMATION
  Report Type: 
  Country: None (occurrence: None)
  Receive Date: 20100304
  Receipt Date: 20100222
  Transmission Date: 20100710
  Serious: Yes (Other)
  Sender: FDA-Public Use
  Company Number: US-WYE-H13739410

PATIENT
  Sex: Female
  Weight: 59.02 kg

DRUGS (3)
  1. PRISTIQ [Suspect]
     Indication: PANIC ATTACK
     Route: 048
     Dates: start: 20091001, end: 20100214
  2. PRISTIQ [Suspect]
     Route: 048
     Dates: start: 20100218
  3. TRAZODONE HCL [Concomitant]
     Indication: INSOMNIA
     Dates: start: 20091001

REACTIONS (7)
  - BLOOD PRESSURE INCREASED [None]
  - DRUG WITHDRAWAL SYNDROME [None]
  - FATIGUE [None]
  - HEART RATE INCREASED [None]
  - PALPITATIONS [None]
  - TENSION [None]
  - VERTIGO [None]
